FAERS Safety Report 26008789 (Version 4)
Quarter: 2025Q4

REPORT INFORMATION
  Report Type: Report from Study
  Country: EU (occurrence: EU)
  Receive Date: 20251106
  Receipt Date: 20251126
  Transmission Date: 20260117
  Serious: Yes (Hospitalization)
  Sender: ABBVIE
  Company Number: EU-ABBVIE-6516852

PATIENT
  Age: 73 Year
  Sex: Male

DRUGS (7)
  1. FOSCARBIDOPA\FOSLEVODOPA [Suspect]
     Active Substance: FOSCARBIDOPA\FOSLEVODOPA
     Indication: Parkinson^s disease
     Dosage: PREVIOUS OF (SD: 0.6 ML), CRN: 0.22 ML/H, CR: 0.43 ML/H, CRH: 0,45ML/H, ED: 0.25 ML, LAST ADMIN: ...
     Route: 058
     Dates: start: 20251020
  2. FOSCARBIDOPA\FOSLEVODOPA [Suspect]
     Active Substance: FOSCARBIDOPA\FOSLEVODOPA
     Dosage: ADJUSTED DOSAGE: (SD: 0.6 ML), CRN: 0.20 ML/H, CR: 0.35 ML/H, CRH: 0.37 ML/H, ED: 0.25 ML
     Route: 058
     Dates: start: 202510, end: 202510
  3. FOSCARBIDOPA\FOSLEVODOPA [Suspect]
     Active Substance: FOSCARBIDOPA\FOSLEVODOPA
     Dosage: PRODUODOPA INITIATION DAY 2: DOSAGE: (SD: 0.6 ML), CRN: 0.22 ML/H, CR: 0.35 ML/H, CRH: 0.37 ML/H,...
     Route: 058
     Dates: start: 202510, end: 202510
  4. FOSCARBIDOPA\FOSLEVODOPA [Suspect]
     Active Substance: FOSCARBIDOPA\FOSLEVODOPA
     Dosage: ADJUSTED DOSAGE: (SD: 0.6 ML), CRN: 0.20 ML/H, CR: 0.32 ML/H, CRH: 0.34 ML/H, ED: 0.20 ML?LAST AD...
     Route: 058
     Dates: start: 202510
  5. FOSCARBIDOPA\FOSLEVODOPA [Suspect]
     Active Substance: FOSCARBIDOPA\FOSLEVODOPA
     Dosage: CRN: 0.2 ML/H, CR: 0.32 ML/H, CRH: 0.34 ML/H, ED: 0.2 ML?FIRST ADMIN DATE: OCT 2025?LAST ADMIN DA...
     Route: 058
  6. FOSCARBIDOPA\FOSLEVODOPA [Suspect]
     Active Substance: FOSCARBIDOPA\FOSLEVODOPA
     Dosage: CURRENT DOSAGE: CRN: 0.22 ML/H, CR: 0.32 ML/H, CRH: 0.34 ML/H, ED: 0.20 ML?FIRST ADMIN DATE: 2025...
     Route: 058
  7. FOSCARBIDOPA\FOSLEVODOPA [Suspect]
     Active Substance: FOSCARBIDOPA\FOSLEVODOPA
     Dosage: CURRENT DOSAGE: CRN: SD: 0.3; CRN: 0.22 ML/H, CR: 0.37 ML/H, CRH: 0.39 ML/H, ED: 0.30 ML.?FIRST A...
     Route: 058

REACTIONS (8)
  - Restlessness [Not Recovered/Not Resolved]
  - On and off phenomenon [Unknown]
  - Hyperkinesia [Not Recovered/Not Resolved]
  - Hallucination [Not Recovered/Not Resolved]
  - Medical device removal [Not Recovered/Not Resolved]
  - Aggression [Not Recovered/Not Resolved]
  - Psychomotor hyperactivity [Not Recovered/Not Resolved]
  - Incorrect dose administered [Unknown]

NARRATIVE: CASE EVENT DATE: 20250101
